FAERS Safety Report 8913461 (Version 1)
Quarter: 2012Q4

REPORT INFORMATION
  Report Type: Spontaneous
  Country: DK (occurrence: None)
  Receive Date: 20121113
  Receipt Date: 20121113
  Transmission Date: 20130627
  Serious: Yes (Hospitalization)
  Sender: FDA-Public Use
  Company Number: 2012MA013223

PATIENT
  Age: 12 Month
  Sex: Male

DRUGS (3)
  1. FEVERALL [Suspect]
     Indication: FEVER
     Route: 054
     Dates: start: 20120523, end: 20120527
  2. AMOXICILLIN AND CLAVULANIC ACID [Suspect]
     Indication: COUGH
     Route: 048
     Dates: start: 20120523, end: 20120527
  3. VENTOLIN /00139501/ [Suspect]
     Indication: SPUTUM
     Dates: start: 20120523, end: 20120527

REACTIONS (2)
  - Acute haemorrhagic oedema of infancy [None]
  - Purpura [None]
